FAERS Safety Report 12311425 (Version 1)
Quarter: 2016Q2

REPORT INFORMATION
  Report Type: Report from Study
  Country: FR (occurrence: FR)
  Receive Date: 20160427
  Receipt Date: 20160427
  Transmission Date: 20160815
  Serious: Yes (Other)
  Sender: FDA-Public Use
  Company Number: FR-UCBSA-2016015171

PATIENT
  Age: 77 Year
  Sex: Female

DRUGS (1)
  1. ROTIGOTINE [Suspect]
     Active Substance: ROTIGOTINE
     Indication: PARKINSON^S DISEASE
     Dosage: DAILY: 2 OR 4MG
     Route: 062

REACTIONS (5)
  - Dizziness [Unknown]
  - Ligament sprain [Unknown]
  - Fall [Unknown]
  - Fatigue [Unknown]
  - Clavicle fracture [Unknown]
